FAERS Safety Report 14246742 (Version 6)
Quarter: 2018Q1

REPORT INFORMATION
  Report Type: Spontaneous
  Country: US (occurrence: US)
  Receive Date: 20171204
  Receipt Date: 20180307
  Transmission Date: 20180508
  Serious: Yes (Hospitalization, Other)
  Sender: FDA-Public Use
  Company Number: US-PFIZER INC-2017514609

PATIENT
  Age: 73 Year
  Sex: Female
  Weight: 74.38 kg

DRUGS (3)
  1. IBRANCE [Suspect]
     Active Substance: PALBOCICLIB
     Indication: BREAST CANCER METASTATIC
     Dosage: 75 MG, CYCLIC (D1-D21 Q28 D)(D 1-21 Q28 DAYS)
     Route: 048
     Dates: start: 20171125
  2. IBRANCE [Suspect]
     Active Substance: PALBOCICLIB
     Dosage: 75 MG, CYCLIC (DAY 1-21 Q 28 DAYS)
     Route: 048
     Dates: start: 20171124, end: 201802
  3. IBRANCE [Suspect]
     Active Substance: PALBOCICLIB
     Dosage: 75 MG, DAILY
     Route: 048

REACTIONS (18)
  - Pyrexia [Unknown]
  - Lethargy [Unknown]
  - Dyspnoea [Not Recovered/Not Resolved]
  - Paranasal sinus discomfort [Unknown]
  - Pneumonia viral [Unknown]
  - Migraine [Not Recovered/Not Resolved]
  - Pain [Unknown]
  - Constipation [Unknown]
  - Viral infection [Unknown]
  - Pneumonia bacterial [Unknown]
  - Nausea [Unknown]
  - Pleural effusion [Unknown]
  - Drug dose omission [Unknown]
  - Vomiting [Unknown]
  - Decreased appetite [Unknown]
  - Cough [Unknown]
  - Condition aggravated [Not Recovered/Not Resolved]
  - Flatulence [Unknown]

NARRATIVE: CASE EVENT DATE: 2017
